FAERS Safety Report 13295683 (Version 2)
Quarter: 2017Q1

REPORT INFORMATION
  Report Type: Report from Study
  Country: JP (occurrence: JP)
  Receive Date: 20170303
  Receipt Date: 20170315
  Transmission Date: 20170428
  Serious: Yes (Hospitalization)
  Sender: FDA-Public Use
  Company Number: JP-CELGENEUS-JPN-2017017607

PATIENT
  Age: 79 Year
  Sex: Female
  Weight: 49 kg

DRUGS (15)
  1. VONOPRAZAN FUMARATE [Concomitant]
     Active Substance: VONOPRAZAN FUMURATE
     Indication: GASTROINTESTINAL DISORDER POSTOPERATIVE
     Dosage: 20 MILLIGRAM
     Route: 048
  2. LATANOPROST. [Concomitant]
     Active Substance: LATANOPROST
     Indication: GLAUCOMA
     Route: 048
  3. CYANOCOBALAMIN. [Concomitant]
     Active Substance: CYANOCOBALAMIN
     Indication: GLAUCOMA
     Route: 048
  4. SODIUM HYALURONATE [Concomitant]
     Active Substance: HYALURONATE SODIUM
     Indication: GLAUCOMA
     Route: 048
  5. AMLODIPINE BESILATE [Concomitant]
     Active Substance: AMLODIPINE BESYLATE
     Indication: HYPERTENSION
     Dosage: 2.5 MILLIGRAM
     Route: 048
  6. PANCRELIPASE. [Concomitant]
     Active Substance: PANCRELIPASE
     Indication: GASTROINTESTINAL DISORDER POSTOPERATIVE
     Dosage: 900 MILLIGRAM
     Route: 048
  7. PIRENOXINE [Concomitant]
     Active Substance: PIRENOXINE
     Indication: CATARACT
     Route: 048
  8. SENNOSIDE [Concomitant]
     Active Substance: SENNOSIDES
     Indication: CONSTIPATION
     Route: 048
  9. ABRAXANE [Suspect]
     Active Substance: PACLITAXEL
     Indication: PANCREATIC CARCINOMA
     Dosage: 175 MILLIGRAM
     Route: 041
     Dates: start: 20170113, end: 20170217
  10. ERYTHROCYTE [Concomitant]
     Indication: ANAEMIA
     Dosage: 2 UNITS
     Route: 065
     Dates: start: 20170302, end: 20170303
  11. MOSAPRIDE CITRATE HYDRATE [Concomitant]
     Active Substance: MOSAPRIDE CITRATE DIHYDRATE
     Indication: GASTROINTESTINAL DISORDER POSTOPERATIVE
     Route: 065
  12. MAGNESIUM OXIDE. [Concomitant]
     Active Substance: MAGNESIUM OXIDE
     Indication: CONSTIPATION
     Dosage: 990 MILLIGRAM
     Route: 048
  13. GEMCITABINE HYDROCHLORIDE. [Suspect]
     Active Substance: GEMCITABINE HYDROCHLORIDE
     Indication: PANCREATIC CARCINOMA
     Dosage: 1401 MILLIGRAM
     Route: 041
     Dates: start: 20170113, end: 20170217
  14. HOCHUEKKITO [Concomitant]
     Active Substance: HERBALS
     Indication: PROPHYLAXIS
     Dosage: 7.5 MILLIGRAM
     Route: 048
  15. SITAGLIPTIN PHOSPHATE HYDRATE [Concomitant]
     Active Substance: SITAGLIPTIN PHOSPHATE
     Indication: DIABETES MELLITUS
     Dosage: 50 MILLIGRAM
     Route: 048

REACTIONS (1)
  - Pancreatic fistula [Recovering/Resolving]

NARRATIVE: CASE EVENT DATE: 20170120
